FAERS Safety Report 7807169-7 (Version None)
Quarter: 2011Q4

REPORT INFORMATION
  Report Type: 
  Country: None (occurrence: None)
  Receive Date: 20111011
  Receipt Date: 20110930
  Transmission Date: 20120403
  Serious: Yes (Other)
  Sender: FDA-Public Use
  Company Number: PHFR2011GB00809

PATIENT
  Sex: Male

DRUGS (1)
  1. CLOZAPINE [Suspect]
     Indication: SCHIZOPHRENIA
     Dosage: 300 MG, NOCTE
     Route: 048
     Dates: start: 20030211

REACTIONS (7)
  - SINUS TACHYCARDIA [None]
  - ECG SIGNS OF MYOCARDIAL ISCHAEMIA [None]
  - DIZZINESS [None]
  - ELECTROCARDIOGRAM REPOLARISATION ABNORMALITY [None]
  - ELECTROCARDIOGRAM T WAVE ABNORMAL [None]
  - LEFT VENTRICULAR FAILURE [None]
  - VERTIGO [None]
